FAERS Safety Report 25815336 (Version 2)
Quarter: 2025Q3

REPORT INFORMATION
  Report Type: Spontaneous
  Country: US (occurrence: US)
  Receive Date: 20250918
  Receipt Date: 20250929
  Transmission Date: 20251021
  Serious: Yes (Other)
  Sender: ROCHE
  Company Number: US-ROCHE-10000388260

PATIENT
  Age: 27 Year
  Sex: Female

DRUGS (7)
  1. XOLAIR PFS [Suspect]
     Active Substance: OMALIZUMAB
     Indication: Allergy to animal
     Dosage: STRENGTH:300MG/2ML
     Route: 058
     Dates: start: 202505
  2. XOLAIR PFS [Suspect]
     Active Substance: OMALIZUMAB
     Indication: Food allergy
  3. XOLAIR PFS [Suspect]
     Active Substance: OMALIZUMAB
     Indication: Rhinitis allergic
  4. AIRSUPRA [Concomitant]
     Active Substance: ALBUTEROL SULFATE\BUDESONIDE
  5. NEFFY [Concomitant]
     Active Substance: EPINEPHRINE
  6. FLUOXETINE [Concomitant]
     Active Substance: FLUOXETINE HYDROCHLORIDE
  7. METHYLPHENIDATE [Concomitant]
     Active Substance: METHYLPHENIDATE

REACTIONS (1)
  - Anaphylactic reaction [Unknown]
